FAERS Safety Report 19724992 (Version 1)
Quarter: 2021Q3

REPORT INFORMATION
  Report Type: Spontaneous
  Country: US (occurrence: US)
  Receive Date: 20210819
  Receipt Date: 20210819
  Transmission Date: 20211014
  Serious: Yes (Hospitalization)
  Sender: FDA-Public Use
  Company Number: NVSC2021US186039

PATIENT
  Age: 53 Year
  Sex: Male

DRUGS (2)
  1. RANITIDINE. [Suspect]
     Active Substance: RANITIDINE
     Indication: GASTROOESOPHAGEAL REFLUX DISEASE
     Dosage: 75 TO 150 MG, QD
     Route: 048
     Dates: end: 201910
  2. RANITIDINE. [Suspect]
     Active Substance: RANITIDINE
     Indication: GASTROOESOPHAGEAL REFLUX DISEASE
     Dosage: 75 TO 150 MG, QD
     Route: 048
     Dates: end: 201910

REACTIONS (3)
  - Incorrect dose administered [Unknown]
  - Prostate cancer [Unknown]
  - Renal cancer [Recovering/Resolving]

NARRATIVE: CASE EVENT DATE: 20090809
